FAERS Safety Report 13219078 (Version 1)
Quarter: 2017Q1

REPORT INFORMATION
  Report Type: Other
  Country: US (occurrence: US)
  Receive Date: 20170210
  Receipt Date: 20170210
  Transmission Date: 20170428
  Serious: Yes (Other)
  Sender: FDA-Public Use
  Company Number: US-ACORDA-ACO_126969_2016

PATIENT
  Sex: Male

DRUGS (1)
  1. AMPYRA [Suspect]
     Active Substance: DALFAMPRIDINE
     Indication: PRODUCT USED FOR UNKNOWN INDICATION
     Dosage: 10 MG, BID
     Route: 048
     Dates: start: 20150922

REACTIONS (7)
  - Head injury [Recovered/Resolved]
  - Wound haemorrhage [Unknown]
  - Balance disorder [Recovered/Resolved]
  - Loss of consciousness [Recovered/Resolved]
  - Dehydration [Unknown]
  - Fall [Recovered/Resolved]
  - Wound [Unknown]
